FAERS Safety Report 6862273-5 (Version None)
Quarter: 2010Q3

REPORT INFORMATION
  Report Type: 
  Country: None (occurrence: None)
  Receive Date: 20100721
  Receipt Date: 20100720
  Transmission Date: 20110219
  Serious: Yes (Hospitalization, Other)
  Sender: FDA-Public Use
  Company Number: IT-BRISTOL-MYERS SQUIBB COMPANY-15132509

PATIENT
  Age: 67 Year
  Sex: Female

DRUGS (3)
  1. COUMADIN [Suspect]
     Indication: HEART VALVE REPLACEMENT
     Route: 048
     Dates: start: 19990101, end: 20100425
  2. ASPIRIN [Suspect]
     Indication: CEREBROVASCULAR ACCIDENT
     Dates: start: 20081029, end: 20100425
  3. KEPPRA [Concomitant]
     Indication: GENERALISED NON-CONVULSIVE EPILEPSY
     Dosage: FILM COATED TABS. TAKEN 1000MG UPTO 25APR10
     Route: 048
     Dates: end: 20100425

REACTIONS (3)
  - ANAEMIA [None]
  - CEREBROVASCULAR ACCIDENT [None]
  - RECTAL HAEMORRHAGE [None]
